FAERS Safety Report 11076088 (Version 3)
Quarter: 2015Q3

REPORT INFORMATION
  Report Type: Report from Study
  Country: IL (occurrence: IL)
  Receive Date: 20150429
  Receipt Date: 20150814
  Transmission Date: 20151125
  Serious: Yes (Life-Threatening, Hospitalization, Other)
  Sender: FDA-Public Use
  Company Number: IL-AMGEN-ISRCT2015010662

PATIENT
  Age: 46 Year
  Sex: Female
  Weight: 68.9 kg

DRUGS (26)
  1. FILGRASTIM [Concomitant]
     Active Substance: FILGRASTIM
     Dosage: 300 MCG
     Route: 058
     Dates: start: 20150101, end: 20150214
  2. DIPYRONE [Concomitant]
     Active Substance: DIPYRONE
     Dosage: 1000 MG, UNK
     Route: 048
     Dates: start: 20150102, end: 20150224
  3. FLUCONAZOLE. [Concomitant]
     Active Substance: FLUCONAZOLE
     Dosage: 400 MG, UNK
     Route: 042
     Dates: start: 20150104, end: 20150131
  4. PERCOCET                           /00446701/ [Concomitant]
     Active Substance: ACETAMINOPHEN\OXYCODONE HYDROCHLORIDE\OXYCODONE TEREPHTHALATE
     Dosage: 10 MG, UNK
     Route: 048
     Dates: start: 20150118, end: 20150118
  5. POTASSIUM CHLORIDE. [Concomitant]
     Active Substance: POTASSIUM CHLORIDE
     Dosage: 1-2 G, UNK
     Route: 042
     Dates: start: 20150129, end: 20150221
  6. BLINATUMOMAB [Suspect]
     Active Substance: BLINATUMOMAB
     Indication: ACUTE LYMPHOCYTIC LEUKAEMIA
     Dosage: 28 MUG, UNK
     Route: 041
     Dates: start: 20150114, end: 20150302
  7. DEXAMETHASONE. [Concomitant]
     Active Substance: DEXAMETHASONE
     Dosage: 2-20 MG, UNK
     Route: 042
     Dates: start: 20141231, end: 20150305
  8. BISACODYL. [Concomitant]
     Active Substance: BISACODYL
     Dosage: 5 MG, UNK
     Route: 048
     Dates: start: 20150104, end: 20150109
  9. LAMIVUDINE. [Concomitant]
     Active Substance: LAMIVUDINE
     Dosage: 100 MG, UNK
     Route: 048
     Dates: start: 20141230, end: 20150301
  10. FUROSEMIDE. [Concomitant]
     Active Substance: FUROSEMIDE
     Dosage: 40-80 MG, UNK
     Route: 042
     Dates: start: 20150116, end: 20150221
  11. PREGABALIN. [Concomitant]
     Active Substance: PREGABALIN
     Dosage: 75-150 MG, UNK
     Route: 048
     Dates: start: 20150112, end: 20150301
  12. TAZOCIN [Concomitant]
     Active Substance: PIPERACILLIN SODIUM\TAZOBACTAM SODIUM
     Dosage: 4.5 G, UNK
     Route: 042
     Dates: start: 20141228, end: 20150302
  13. ALLOPURINOL. [Concomitant]
     Active Substance: ALLOPURINOL
     Dosage: 100-300 MG, UNK
     Route: 048
     Dates: start: 201410, end: 20150301
  14. FENTANYL. [Concomitant]
     Active Substance: FENTANYL
     Dosage: 25-50 MUG, UNK
     Route: 062
     Dates: start: 20150119, end: 20150305
  15. AMIKACIN [Concomitant]
     Active Substance: AMIKACIN
     Dosage: 600-1100 MG, UNK
     Route: 042
     Dates: start: 20150101, end: 20150301
  16. TRAMADOL. [Concomitant]
     Active Substance: TRAMADOL
     Dosage: UNK
     Route: 048
     Dates: start: 201410, end: 20150219
  17. OXYCODONE HYDROCHLORIDE. [Concomitant]
     Active Substance: OXYCODONE HYDROCHLORIDE
     Dosage: 5 MG, UNK
     Route: 048
     Dates: start: 20150118
  18. TARGIN [Concomitant]
     Active Substance: NALOXONE HYDROCHLORIDE\OXYCODONE HYDROCHLORIDE
     Dosage: 20-40 MG, UNK
     Route: 048
     Dates: start: 20150102, end: 20150202
  19. OMEPRAZOLE. [Concomitant]
     Active Substance: OMEPRAZOLE
     Dosage: 20-80 MG, UNK
     Route: 048
     Dates: start: 20141228, end: 20150226
  20. TIENAM [Concomitant]
     Active Substance: CILASTATIN SODIUM\IMIPENEM
     Dosage: 500 MG, UNK
     Route: 042
     Dates: start: 20150118, end: 20150120
  21. MORPHINE [Concomitant]
     Active Substance: MORPHINE
     Dosage: 5-100 MG, UNK
     Route: 042
     Dates: start: 20150103, end: 20150224
  22. PLATELETS [Concomitant]
     Active Substance: HUMAN PLATELET, ALLOGENIC
     Dosage: 5 UNK, UNK
     Route: 042
     Dates: start: 20150105, end: 20150226
  23. RED BLOOD CELLS [Concomitant]
     Active Substance: HUMAN RED BLOOD CELL
     Dosage: UNK
     Route: 042
     Dates: start: 20150105, end: 20150223
  24. LACTULOSE. [Concomitant]
     Active Substance: LACTULOSE
     Dosage: 30 ML, UNK
     Route: 048
     Dates: start: 20150104, end: 20150110
  25. CIPROFLOXACIN. [Concomitant]
     Active Substance: CIPROFLOXACIN
     Dosage: 500 MG, UNK
     Route: 048
     Dates: start: 20141228, end: 20150101
  26. BROTIZOLAM [Concomitant]
     Active Substance: BROTIZOLAM
     Dosage: 0.25 MG, UNK
     Route: 048
     Dates: start: 20150120, end: 20150214

REACTIONS (4)
  - Asthenia [Not Recovered/Not Resolved]
  - Pyrexia [Not Recovered/Not Resolved]
  - Epistaxis [Recovered/Resolved]
  - Blood lactate dehydrogenase increased [Not Recovered/Not Resolved]

NARRATIVE: CASE EVENT DATE: 20150203
